FAERS Safety Report 10006247 (Version 1)
Quarter: 2014Q1

REPORT INFORMATION
  Report Type: Spontaneous
  Country: US (occurrence: US)
  Receive Date: 20140313
  Receipt Date: 20140313
  Transmission Date: 20141002
  Serious: Yes (Hospitalization)
  Sender: FDA-Public Use
  Company Number: US-BAYER-2014-037001

PATIENT
  Age: 44 Year
  Sex: Female
  Weight: 95.24 kg

DRUGS (6)
  1. YAZ [Suspect]
  2. YASMIN [Suspect]
  3. METFORMIN [Concomitant]
     Dosage: 1000 MG, BID
  4. PENICILLIN VK [Concomitant]
     Dosage: 500 MG, UNK
  5. IBUPROFEN [Concomitant]
     Dosage: 800 MG, UNK
  6. EXCEDRIN MIGRAINE [Concomitant]
     Indication: MIGRAINE

REACTIONS (1)
  - Deep vein thrombosis [None]
